FAERS Safety Report 8771574 (Version 1)
Quarter: 2012Q4

REPORT INFORMATION
  Report Type: 
  Country: US (occurrence: US)
  Receive Date: 20120906
  Receipt Date: 20120906
  Transmission Date: 20130627
  Serious: No
  Sender: FDA-Public Use
  Company Number: US-PFIZER INC-2012218973

PATIENT
  Age: 65 Year
  Sex: Female
  Weight: 72.56 kg

DRUGS (3)
  1. CHANTIX [Suspect]
     Indication: SMOKING CESSATION THERAPY
     Dosage: 0.5 mg, daily
     Route: 048
     Dates: start: 201208
  2. CHANTIX [Suspect]
     Dosage: UNK
     Route: 048
     Dates: start: 201208
  3. METOPROLOL [Concomitant]
     Indication: HYPERTENSION
     Dosage: 50 mg, daily

REACTIONS (1)
  - Abdominal discomfort [Not Recovered/Not Resolved]
